FAERS Safety Report 4393343-1 (Version None)
Quarter: 2004Q3

REPORT INFORMATION
  Report Type: 
  Country: None (occurrence: None)
  Receive Date: 20040709
  Receipt Date: 20040624
  Transmission Date: 20050211
  Serious: Yes (Death, Hospitalization)
  Sender: FDA-Public Use
  Company Number: 200416401GDDC

PATIENT
  Age: 53 Year
  Sex: Female

DRUGS (11)
  1. TAXOTERE [Suspect]
     Indication: NON-SMALL CELL LUNG CANCER
     Route: 042
     Dates: start: 20040526, end: 20040602
  2. GEMCITABINE [Suspect]
     Indication: NON-SMALL CELL LUNG CANCER
     Dosage: DOSE: UNK
  3. NEURONTIN [Concomitant]
     Indication: PAIN
     Route: 048
     Dates: start: 20040509, end: 20040618
  4. TEMAZEPAM [Concomitant]
     Indication: INSOMNIA
     Route: 048
     Dates: start: 20040509, end: 20040618
  5. ACETAMINOPHEN [Concomitant]
     Indication: PROPHYLAXIS
     Route: 048
     Dates: start: 20040509, end: 20040618
  6. ATENOLOL [Concomitant]
     Route: 048
     Dates: start: 19790101, end: 20040618
  7. DEXAMETHASONE [Concomitant]
     Route: 048
     Dates: start: 20040509, end: 20040618
  8. CYCLIZINE [Concomitant]
     Route: 048
     Dates: start: 20040511, end: 20040618
  9. METOCLOPRAMIDE [Concomitant]
     Dates: start: 20040509, end: 20040618
  10. MORPHINE SULFATE [Concomitant]
     Indication: PAIN
     Route: 048
     Dates: start: 20040520, end: 20040618
  11. ANAMORPH [Concomitant]
     Indication: PAIN
     Route: 048
     Dates: start: 20040525, end: 20040618

REACTIONS (5)
  - LYMPHANGITIS [None]
  - PNEUMONITIS [None]
  - PULMONARY EMBOLISM [None]
  - RESPIRATORY FAILURE [None]
  - TACHYCARDIA [None]
